FAERS Safety Report 21520302 (Version 10)
Quarter: 2025Q4

REPORT INFORMATION
  Report Type: Spontaneous
  Country: US (occurrence: US)
  Receive Date: 20221028
  Receipt Date: 20251210
  Transmission Date: 20260118
  Serious: Yes (Other)
  Sender: PFIZER
  Company Number: US-PFIZER INC-202200730015

PATIENT
  Age: 79 Year
  Sex: Female

DRUGS (1)
  1. PREMPRO [Suspect]
     Active Substance: ESTROGENS, CONJUGATED\MEDROXYPROGESTERONE ACETATE
     Indication: Menopausal symptoms
     Dosage: 1 DF, DAILY (0.625 -2.5 MG PER TABLET/ TAKE 1 TABLET BY MOUTH DAILY)
     Route: 048
     Dates: start: 20220517

REACTIONS (4)
  - Pneumonia [Unknown]
  - Limb operation [Unknown]
  - Memory impairment [Not Recovered/Not Resolved]
  - Speech disorder [Unknown]
